FAERS Safety Report 16329871 (Version 1)
Quarter: 2019Q2

REPORT INFORMATION
  Report Type: Spontaneous
  Country: US (occurrence: US)
  Receive Date: 20190411
  Receipt Date: 20190411
  Transmission Date: 20190711
  Serious: Yes (Hospitalization)
  Sender: FDA-Public Use
  Company Number: None

PATIENT
  Age: 73 Year
  Sex: Male
  Weight: 72 kg

DRUGS (3)
  1. DEXAMETHASONE. [Suspect]
     Active Substance: DEXAMETHASONE
     Dates: end: 20190319
  2. VELCADE [Suspect]
     Active Substance: BORTEZOMIB
     Dates: end: 20190311
  3. LENALIDOMIDE (CC-5013) [Suspect]
     Active Substance: LENALIDOMIDE
     Dates: end: 20190311

REACTIONS (4)
  - Haemorrhage [None]
  - International normalised ratio increased [None]
  - Haemoglobin decreased [None]
  - Skin laceration [None]

NARRATIVE: CASE EVENT DATE: 20190320
